FAERS Safety Report 14920325 (Version 2)
Quarter: 2018Q2

REPORT INFORMATION
  Report Type: Report from Study
  Country: US (occurrence: US)
  Receive Date: 20180521
  Receipt Date: 20180529
  Transmission Date: 20180711
  Serious: Yes (Death)
  Sender: FDA-Public Use
  Company Number: US-EMD SERONO-E2B_90044001

PATIENT
  Age: 69 Year
  Sex: Male
  Weight: 58 kg

DRUGS (2)
  1. AVELUMAB [Suspect]
     Active Substance: AVELUMAB
     Indication: SQUAMOUS CELL CARCINOMA OF HEAD AND NECK
     Dosage: 647 MG, DAY 1 OF LEAD-IN PHASE; DAYS 8, 25 AND 39 OF CRT PHASE AND EVERY 2 WEEKS DURING MAINTENANCE
     Route: 041
     Dates: start: 20180227
  2. CISPLATIN. [Suspect]
     Active Substance: CISPLATIN
     Indication: SQUAMOUS CELL CARCINOMA OF HEAD AND NECK
     Dosage: 177 MG, DAYS 1, 22 AND 43 OF CRT PHASE
     Route: 041
     Dates: start: 20180306, end: 20180417

REACTIONS (1)
  - Respiratory failure [Fatal]

NARRATIVE: CASE EVENT DATE: 20180510
